FAERS Safety Report 8692576 (Version 2)
Quarter: 2012Q4

REPORT INFORMATION
  Report Type: 
  Country: FR (occurrence: FR)
  Receive Date: 20120730
  Receipt Date: 20120911
  Transmission Date: 20130627
  Serious: Yes (Hospitalization)
  Sender: FDA-Public Use
  Company Number: FR-GLAXOSMITHKLINE-B0816485A

PATIENT
  Age: 64 Year
  Sex: Male

DRUGS (2)
  1. AVODART [Suspect]
     Indication: BENIGN PROSTATIC HYPERPLASIA
     Dosage: .5MG Per day
     Route: 048
     Dates: start: 20120717
  2. XATRAL [Suspect]
     Indication: BENIGN PROSTATIC HYPERPLASIA
     Dosage: 10MG Per day
     Route: 048
     Dates: start: 20120716, end: 20120718

REACTIONS (2)
  - Priapism [Recovered/Resolved]
  - Product quality issue [Unknown]
